FAERS Safety Report 15347272 (Version 6)
Quarter: 2021Q2

REPORT INFORMATION
  Report Type: Spontaneous
  Country: US (occurrence: US)
  Receive Date: 20180904
  Receipt Date: 20210615
  Transmission Date: 20210716
  Serious: No
  Sender: FDA-Public Use
  Company Number: US-SA-2018SA245808

PATIENT
  Age: 17 Year
  Sex: Male

DRUGS (5)
  1. CEREZYME [Suspect]
     Active Substance: IMIGLUCERASE
     Dosage: 3600 U, QOW
     Route: 042
  2. CEREZYME [Suspect]
     Active Substance: IMIGLUCERASE
     Indication: GAUCHER^S DISEASE
     Dosage: 2000 IU, QOW
     Route: 058
     Dates: start: 20160323
  3. CEREZYME [Suspect]
     Active Substance: IMIGLUCERASE
     Dosage: 2000 IU, QOW
     Route: 041
     Dates: start: 20160328
  4. CEREZYME [Suspect]
     Active Substance: IMIGLUCERASE
     Dosage: 2000 DF, QOW
     Route: 041
     Dates: start: 20160629
  5. CEREZYME [Suspect]
     Active Substance: IMIGLUCERASE
     Dosage: 3600 U (ENZYME UNIT)
     Route: 042
     Dates: start: 20160329

REACTIONS (3)
  - Intentional dose omission [Unknown]
  - Product use issue [Unknown]
  - Incorrect route of product administration [Unknown]

NARRATIVE: CASE EVENT DATE: 20210526
